FAERS Safety Report 6146791-3 (Version None)
Quarter: 2009Q2

REPORT INFORMATION
  Report Type: 
  Country: None (occurrence: None)
  Receive Date: 20090407
  Receipt Date: 20090401
  Transmission Date: 20091009
  Serious: Yes (Other)
  Sender: FDA-Public Use
  Company Number: US-SANOFI-SYNTHELABO-A03200901415

PATIENT
  Sex: Female

DRUGS (7)
  1. LEVOTHYROXINE SODIUM [Concomitant]
     Indication: DRUG USE FOR UNKNOWN INDICATION
     Route: 048
  2. GABAPENTIN [Concomitant]
     Indication: NEUROPATHY PERIPHERAL
     Route: 048
  3. CRESTOR [Concomitant]
     Indication: DRUG USE FOR UNKNOWN INDICATION
     Route: 048
  4. CYMBALTA [Concomitant]
     Indication: DRUG USE FOR UNKNOWN INDICATION
     Route: 048
  5. ALPRAZOLAM [Concomitant]
     Indication: DRUG USE FOR UNKNOWN INDICATION
     Route: 048
  6. AMBIEN CR [Suspect]
     Indication: SLEEP DISORDER
     Route: 048
     Dates: start: 20081204
  7. AMBIEN CR [Suspect]
     Route: 048
     Dates: end: 20090207

REACTIONS (4)
  - FACE INJURY [None]
  - FALL [None]
  - LOSS OF CONSCIOUSNESS [None]
  - MOUTH HAEMORRHAGE [None]
